FAERS Safety Report 25764301 (Version 1)
Quarter: 2025Q3

REPORT INFORMATION
  Report Type: Spontaneous
  Country: US (occurrence: US)
  Receive Date: 20250905
  Receipt Date: 20250905
  Transmission Date: 20251020
  Serious: No
  Sender: DOMPE FARMACEUTICI
  Company Number: US-FARMAPROD-202412-4232

PATIENT
  Sex: Male

DRUGS (1)
  1. OXERVATE [Suspect]
     Active Substance: CENEGERMIN-BKBJ
     Indication: Neurotrophic keratopathy
     Route: 047
     Dates: start: 20241108

REACTIONS (7)
  - Eye pain [Not Recovered/Not Resolved]
  - Dizziness [Unknown]
  - Headache [Unknown]
  - Lacrimation increased [Unknown]
  - Eye irritation [Unknown]
  - Urticaria [Unknown]
  - Ocular discomfort [Unknown]
